FAERS Safety Report 7040455-X (Version None)
Quarter: 2010Q4

REPORT INFORMATION
  Report Type: 
  Country: None (occurrence: None)
  Receive Date: 20101012
  Receipt Date: 20101006
  Transmission Date: 20110411
  Serious: Yes (Hospitalization)
  Sender: FDA-Public Use
  Company Number: US-GILEAD-2010-0032392

PATIENT
  Sex: Female

DRUGS (1)
  1. LETAIRIS [Suspect]
     Indication: PULMONARY ARTERIAL HYPERTENSION
     Dates: start: 20100211, end: 20100928

REACTIONS (4)
  - EPISTAXIS [None]
  - HYPOXIA [None]
  - OEDEMA PERIPHERAL [None]
  - RENAL IMPAIRMENT [None]
